FAERS Safety Report 4673876-0 (Version None)
Quarter: 2005Q2

REPORT INFORMATION
  Report Type: 
  Country: None (occurrence: None)
  Receive Date: 20050525
  Receipt Date: 20050513
  Transmission Date: 20051028
  Serious: Yes (Hospitalization)
  Sender: FDA-Public Use
  Company Number: DE-MERCK-0505DEU00106

PATIENT
  Age: 9 Year
  Sex: Female
  Weight: 36 kg

DRUGS (3)
  1. SINGULAIR [Suspect]
     Route: 048
     Dates: start: 20040401
  2. BUDESONIDE [Concomitant]
     Route: 065
  3. CETIRIZINE HYDROCHLORIDE [Concomitant]
     Route: 065

REACTIONS (1)
  - GASTRITIS [None]
